FAERS Safety Report 15419836 (Version 1)
Quarter: 2018Q3

REPORT INFORMATION
  Report Type: Spontaneous
  Country: CN (occurrence: CN)
  Receive Date: 20180924
  Receipt Date: 20180924
  Transmission Date: 20181010
  Serious: Yes (Other)
  Sender: FDA-Public Use
  Company Number: CN-PFIZER INC-2018378985

PATIENT
  Age: 12 Year
  Sex: Male
  Weight: 44 kg

DRUGS (2)
  1. METHOTREXATE. [Suspect]
     Active Substance: METHOTREXATE
     Indication: OSTEOSARCOMA
     Dosage: 15 G, 1X/DAY
     Route: 041
  2. VINDESINE SULFATE [Concomitant]
     Active Substance: VINDESINE SULFATE
     Dosage: 3 MG, 1X/DAY
     Route: 041

REACTIONS (6)
  - Swelling [Not Recovered/Not Resolved]
  - Throat irritation [Recovering/Resolving]
  - Ear swelling [Recovering/Resolving]
  - Rash generalised [Recovering/Resolving]
  - Pyrexia [Not Recovered/Not Resolved]
  - Pruritus generalised [Recovering/Resolving]

NARRATIVE: CASE EVENT DATE: 20180917
